FAERS Safety Report 17088678 (Version 2)
Quarter: 2019Q4

REPORT INFORMATION
  Report Type: Report from Study
  Country: None (occurrence: US)
  Receive Date: 20191128
  Receipt Date: 20191224
  Transmission Date: 20200122
  Serious: Yes (Hospitalization)
  Sender: FDA-Public Use
  Company Number: US-ABBVIE-19K-163-3168018-00

PATIENT
  Age: 71 Year
  Sex: Female

DRUGS (2)
  1. HUMIRA [Suspect]
     Active Substance: ADALIMUMAB
     Indication: PSORIASIS
     Dosage: DAY 1
     Route: 058
     Dates: start: 20190606, end: 20190606
  2. HUMIRA [Suspect]
     Active Substance: ADALIMUMAB
     Route: 058
     Dates: start: 20190612, end: 20191115

REACTIONS (11)
  - Pharyngeal injury [Recovered/Resolved]
  - Choking [Unknown]
  - Sciatic nerve neuropathy [Unknown]
  - Haemoptysis [Recovering/Resolving]
  - Fatigue [Unknown]
  - Psoriasis [Not Recovered/Not Resolved]
  - Cough [Recovering/Resolving]
  - Weight decreased [Recovering/Resolving]
  - Arthralgia [Recovered/Resolved]
  - Fatigue [Recovered/Resolved]
  - Asthenia [Not Recovered/Not Resolved]

NARRATIVE: CASE EVENT DATE: 2019
